FAERS Safety Report 9339290 (Version 1)
Quarter: 2013Q2

REPORT INFORMATION
  Report Type: Report from Study
  Country: MX (occurrence: MX)
  Receive Date: 20130610
  Receipt Date: 20130610
  Transmission Date: 20140414
  Serious: Yes (Death, Hospitalization, Other)
  Sender: FDA-Public Use
  Company Number: PHHY2013MX053697

PATIENT
  Age: 51 Year
  Sex: Male

DRUGS (6)
  1. GLIVEC [Suspect]
     Indication: CHRONIC MYELOID LEUKAEMIA
     Dosage: 400 MG, UNK
     Route: 048
     Dates: start: 20130314
  2. GLIVEC [Suspect]
     Dosage: 600 MG, UNK
     Route: 048
     Dates: start: 20130329
  3. GLIVEC [Suspect]
     Dosage: 800 MG, UNK
     Route: 048
  4. CHEMOTHERAPEUTICS [Concomitant]
     Dosage: UNK UKN, UNK
  5. CYTARABINE [Concomitant]
  6. DAUNORUBICIN [Concomitant]

REACTIONS (5)
  - Chronic myeloid leukaemia [Fatal]
  - Malignant neoplasm progression [Fatal]
  - Blast crisis in myelogenous leukaemia [Unknown]
  - Upper limb fracture [Unknown]
  - Drug ineffective [Unknown]
